FAERS Safety Report 5632685-6 (Version None)
Quarter: 2008Q1

REPORT INFORMATION
  Report Type: 
  Country: None (occurrence: None)
  Receive Date: 20080219
  Receipt Date: 20080207
  Transmission Date: 20080703
  Serious: Yes (Hospitalization)
  Sender: FDA-Public Use
  Company Number: 2008-00421

PATIENT
  Sex: Male

DRUGS (4)
  1. VELCADE [Suspect]
     Indication: MULTIPLE MYELOMA
     Dates: end: 20080204
  2. MELPHALAN [Concomitant]
  3. DEXAMETHASONE TAB [Concomitant]
  4. NEURONTIN [Concomitant]

REACTIONS (4)
  - ASTERIXIS [None]
  - MUSCULAR WEAKNESS [None]
  - PYREXIA [None]
  - STEM CELL TRANSPLANT [None]
